FAERS Safety Report 6427085-5 (Version None)
Quarter: 2009Q4

REPORT INFORMATION
  Report Type: 
  Country: None (occurrence: None)
  Receive Date: 20091103
  Receipt Date: 20091103
  Transmission Date: 20100525
  Serious: Yes (Hospitalization)
  Sender: FDA-Public Use
  Company Number: None

PATIENT
  Sex: Male
  Weight: 93.4 kg

DRUGS (1)
  1. TEMOZOLOMIDE [Suspect]
     Dosage: 2805 MG
     Dates: end: 20091022

REACTIONS (4)
  - ACTIVITIES OF DAILY LIVING IMPAIRED [None]
  - PERFORMANCE STATUS DECREASED [None]
  - POLYURIA [None]
  - SEPSIS [None]
